FAERS Safety Report 15311778 (Version 2)
Quarter: 2018Q3

REPORT INFORMATION
  Report Type: Spontaneous
  Country: US (occurrence: US)
  Receive Date: 20180823
  Receipt Date: 20180831
  Transmission Date: 20181010
  Serious: Yes (Other)
  Sender: FDA-Public Use
  Company Number: PHHY2018US075510

PATIENT
  Sex: Female

DRUGS (1)
  1. SYSTANE GELDROPS [Suspect]
     Active Substance: POLYETHYLENE GLYCOL 400\PROPYLENE GLYCOL
     Indication: DRY EYE
     Dosage: (NIGHTLY)
     Route: 047

REACTIONS (4)
  - Urticaria [Recovered/Resolved]
  - Pruritus generalised [Recovering/Resolving]
  - Product quality issue [Unknown]
  - Hypersensitivity [Not Recovered/Not Resolved]
